FAERS Safety Report 5102987-0 (Version None)
Quarter: 2006Q3

REPORT INFORMATION
  Report Type: 
  Country: None (occurrence: None)
  Receive Date: 20060908
  Receipt Date: 20060824
  Transmission Date: 20061208
  Serious: Yes (Hospitalization, Other)
  Sender: FDA-Public Use
  Company Number: 2006AL002518

PATIENT
  Age: 87 Year
  Sex: Male

DRUGS (12)
  1. DICLOFENAC SODIUM DELAYED-RELEASE TABLETS, 75 MG (PUREPAC) (DICLOFENAC [Suspect]
     Indication: PAIN
     Dosage: 75 MG; QD; PO
     Route: 048
     Dates: end: 20060627
  2. AMITRIPTYLINE HCL [Concomitant]
  3. ACETAMINOPHEN W/ CODEINE [Concomitant]
  4. DOMPERIDONE [Concomitant]
  5. FUROSEMIDE [Concomitant]
  6. OMEPRAZOLE [Concomitant]
  7. GTN-S [Concomitant]
  8. TOLTERODINE [Concomitant]
  9. HALOPERIDOL [Concomitant]
  10. GAVISCON [Concomitant]
  11. FERROUS SULFATE TAB [Concomitant]
  12. ASPIRIN W/DIPYRIDAMOLE [Concomitant]

REACTIONS (2)
  - GASTROINTESTINAL HAEMORRHAGE [None]
  - PHARMACEUTICAL PRODUCT COMPLAINT [None]
